FAERS Safety Report 6076602-6 (Version None)
Quarter: 2009Q1

REPORT INFORMATION
  Report Type: 
  Country: None (occurrence: None)
  Receive Date: 20090213
  Receipt Date: 20081029
  Transmission Date: 20090719
  Serious: No
  Sender: FDA-Public Use
  Company Number: US-BRISTOL-MYERS SQUIBB COMPANY-14387633

PATIENT
  Age: 58 Year
  Sex: Female
  Weight: 91 kg

DRUGS (5)
  1. IXEMPRA KIT [Suspect]
     Indication: BREAST CANCER METASTATIC
     Dates: start: 20081001, end: 20081001
  2. LASIX [Concomitant]
  3. POTASSIUM CHLORIDE [Concomitant]
  4. ZOLOFT [Concomitant]
  5. HYPERTENSION MEDICATION [Concomitant]

REACTIONS (1)
  - DYSPNOEA EXERTIONAL [None]
